FAERS Safety Report 22169142 (Version 1)
Quarter: 2023Q2

REPORT INFORMATION
  Report Type: Spontaneous
  Country: CN (occurrence: None)
  Receive Date: 20230404
  Receipt Date: 20230404
  Transmission Date: 20230722
  Serious: Yes (Other)
  Sender: FDA-Public Use
  Company Number: CN-ROCHE-3323022

PATIENT
  Age: 48 Year
  Sex: Female

DRUGS (3)
  1. CAPECITABINE [Suspect]
     Active Substance: CAPECITABINE
     Indication: Ovarian cancer
     Route: 048
     Dates: start: 20230225, end: 20230310
  2. LEUCOGEN [Concomitant]
     Active Substance: LEUCOGEN
     Route: 048
  3. THROMBOPOIETIN [Concomitant]
     Active Substance: THROMBOPOIETIN

REACTIONS (2)
  - Platelet count decreased [Not Recovered/Not Resolved]
  - Off label use [Unknown]

NARRATIVE: CASE EVENT DATE: 20230323
